FAERS Safety Report 11153382 (Version 2)
Quarter: 2015Q3

REPORT INFORMATION
  Report Type: Report from Study
  Country: CA (occurrence: CA)
  Receive Date: 20150602
  Receipt Date: 20150825
  Transmission Date: 20151125
  Serious: Yes (Other)
  Sender: FDA-Public Use
  Company Number: PHHY2012CA068444

PATIENT
  Age: 65 Year
  Sex: Male

DRUGS (11)
  1. AFINITOR [Suspect]
     Active Substance: EVEROLIMUS
     Dosage: 10 MG, QID
     Route: 048
  2. AFINITOR [Suspect]
     Active Substance: EVEROLIMUS
     Dosage: 10 MG, QD
     Route: 048
     Dates: start: 20130425
  3. AFINITOR [Suspect]
     Active Substance: EVEROLIMUS
     Dosage: 5-10 MG, QD ALTERNATING
     Route: 048
  4. AFINITOR [Suspect]
     Active Substance: EVEROLIMUS
     Dosage: 5 MG, QD
     Route: 048
  5. AFINITOR [Suspect]
     Active Substance: EVEROLIMUS
     Indication: NEUROENDOCRINE CARCINOMA
     Dosage: 10 MG, QD
     Route: 048
  6. SANDOSTATIN [Suspect]
     Active Substance: OCTREOTIDE ACETATE
     Indication: NEUROENDOCRINE TUMOUR
     Dosage: UNK
     Route: 058
     Dates: start: 20120704, end: 20120706
  7. SANDOSTATIN LAR DEPOT [Suspect]
     Active Substance: OCTREOTIDE ACETATE
     Indication: NEUROENDOCRINE CARCINOMA
     Dosage: 30 MG, QMO (30 DAYS)
     Route: 030
     Dates: start: 20120802
  8. CRESTOR [Suspect]
     Active Substance: ROSUVASTATIN CALCIUM
     Indication: PRODUCT USED FOR UNKNOWN INDICATION
     Route: 065
  9. AFINITOR [Suspect]
     Active Substance: EVEROLIMUS
     Dosage: 5 MG, UNK
     Route: 048
  10. AFINITOR [Suspect]
     Active Substance: EVEROLIMUS
     Indication: PANCREATIC NEUROENDOCRINE TUMOUR METASTATIC
     Dosage: 5 MG, QD
     Route: 048
     Dates: start: 201304, end: 201306
  11. AFINITOR [Suspect]
     Active Substance: EVEROLIMUS
     Dosage: 10 MG, QID
     Route: 048

REACTIONS (24)
  - Liver disorder [Recovering/Resolving]
  - Diarrhoea [Recovered/Resolved]
  - Malaise [Unknown]
  - Rash [Unknown]
  - Malignant neoplasm progression [Recovering/Resolving]
  - Vomiting [Recovering/Resolving]
  - Faeces discoloured [Unknown]
  - Blood glucose increased [Unknown]
  - Metastases to liver [Unknown]
  - Hepatic function abnormal [Recovered/Resolved]
  - Paraesthesia [Unknown]
  - Neoplasm [Recovering/Resolving]
  - Food poisoning [Recovering/Resolving]
  - Blood pressure systolic increased [Unknown]
  - Nausea [Unknown]
  - Metastases to abdominal cavity [Unknown]
  - Dysgeusia [Recovering/Resolving]
  - Acne [Unknown]
  - Weight decreased [Unknown]
  - Type 2 diabetes mellitus [Unknown]
  - Abdominal pain [Recovering/Resolving]
  - Asthenia [Unknown]
  - Middle insomnia [Unknown]
  - Infection [Unknown]

NARRATIVE: CASE EVENT DATE: 20120802
